FAERS Safety Report 5210143-0 (Version None)
Quarter: 2006Q4

REPORT INFORMATION
  Report Type: 
  Country: None (occurrence: None)
  Receive Date: 20061103
  Receipt Date: 20060712
  Transmission Date: 20070319
  Serious: No
  Sender: FDA-Public Use
  Company Number: FACT0600305

PATIENT
  Age: 55 Year
  Sex: Female

DRUGS (5)
  1. FACTIVE [Suspect]
     Indication: RESPIRATORY TRACT INFECTION BACTERIAL
     Dosage: 320 MG, QD, ORAL
     Route: 048
     Dates: start: 20060701, end: 20060705
  2. ALLEGRA [Suspect]
     Indication: HYPERSENSITIVITY
     Dates: start: 20060701
  3. SINGULAIR [Concomitant]
  4. PREVACID [Concomitant]
  5. ZETIA [Concomitant]

REACTIONS (1)
  - RASH GENERALISED [None]
